FAERS Safety Report 4475378-3 (Version None)
Quarter: 2004Q4

REPORT INFORMATION
  Report Type: 
  Country: None (occurrence: None)
  Receive Date: 20041014
  Receipt Date: 20041014
  Transmission Date: 20050328
  Serious: Yes (Life-Threatening)
  Sender: FDA-Public Use
  Company Number: None

PATIENT
  Sex: Male
  Weight: 92.9874 kg

DRUGS (1)
  1. BEXTRA [Suspect]
     Indication: ARTHRITIS
     Dosage: 20 MG ONE PER DAY ORAL
     Route: 048
     Dates: start: 20040804, end: 20041010

REACTIONS (11)
  - ABDOMINAL PAIN UPPER [None]
  - ACNE [None]
  - ALOPECIA [None]
  - BACK PAIN [None]
  - CHEST PAIN [None]
  - ERECTILE DYSFUNCTION [None]
  - HYPERHIDROSIS [None]
  - HYPERSENSITIVITY [None]
  - RASH ERYTHEMATOUS [None]
  - RHINORRHOEA [None]
  - SWELLING FACE [None]
